FAERS Safety Report 16014236 (Version 3)
Quarter: 2019Q1

REPORT INFORMATION
  Report Type: Spontaneous
  Country: CR (occurrence: CR)
  Receive Date: 20190227
  Receipt Date: 20190308
  Transmission Date: 20190418
  Serious: Yes (Death, Life-Threatening, Hospitalization, Disabling, Other)
  Sender: FDA-Public Use
  Company Number: CR-PFIZER INC-2018467509

PATIENT
  Age: 70 Year
  Sex: Female

DRUGS (17)
  1. SUTENT [Suspect]
     Active Substance: SUNITINIB MALATE
     Dosage: 50 MG, CYCLIC (DAILY WITH BREAKS)
     Route: 048
     Dates: start: 20181102, end: 20190221
  2. CLONAZEPAM. [Concomitant]
     Active Substance: CLONAZEPAM
     Dosage: 8 GTT, 1X/DAY
  3. DISLEP [Concomitant]
     Dosage: 15 GTT, 3X/DAY
     Route: 048
  4. MORPHINE [Concomitant]
     Active Substance: MORPHINE
     Dosage: 1.5 ML, 3X/DAY
     Route: 048
  5. GABAPENTIN. [Concomitant]
     Active Substance: GABAPENTIN
     Dosage: 300 MG, 1X/DAY
     Route: 048
  6. TRAMAL LONG [Concomitant]
     Active Substance: TRAMADOL
     Dosage: UNK
     Dates: start: 20181025
  7. SILVER OXIDE [Concomitant]
     Active Substance: SILVER OXIDE
     Dosage: UNK UNK, 2X/DAY
     Route: 061
  8. IRBESARTAN. [Concomitant]
     Active Substance: IRBESARTAN
     Dosage: 0.5 DF, 1X/DAY
     Route: 048
  9. ATROVENT [Concomitant]
     Active Substance: IPRATROPIUM BROMIDE
     Dosage: 2 ML + 1 ML PHYSIOLOGICAL SERUM, 2X/DAY
     Route: 055
  10. HYFIBER [Concomitant]
     Dosage: 30 MG, 1X/DAY
     Route: 048
  11. TRAMADOL. [Concomitant]
     Active Substance: TRAMADOL
     Dosage: UNK
     Dates: start: 20181025
  12. NEURONTIN [Concomitant]
     Active Substance: GABAPENTIN
     Dosage: UNK
     Dates: start: 20181025
  13. OMEPRAZOL [Concomitant]
     Active Substance: OMEPRAZOLE
     Dosage: 20 MG, 2X/DAY
     Route: 048
  14. SUTENT [Suspect]
     Active Substance: SUNITINIB MALATE
     Indication: CLEAR CELL RENAL CELL CARCINOMA
     Dosage: 50 MG, CYCLIC (DAILY WITH BREAKS)
     Route: 048
     Dates: start: 20181025
  15. LANTUS [Concomitant]
     Active Substance: INSULIN GLARGINE
     Dosage: 20 IU, 1X/DAY
     Route: 058
     Dates: start: 2016
  16. FUROSEMIDE. [Concomitant]
     Active Substance: FUROSEMIDE
     Dosage: 1 DF, 2X/DAY
     Route: 048
  17. SPIRONOLACTONE. [Concomitant]
     Active Substance: SPIRONOLACTONE
     Dosage: 0.5 DF, 1X/DAY
     Route: 048

REACTIONS (18)
  - Cardiac failure congestive [Not Recovered/Not Resolved]
  - Oral discomfort [Not Recovered/Not Resolved]
  - Cough [Unknown]
  - Cardiotoxicity [Fatal]
  - Pain in extremity [Recovered/Resolved]
  - Somnolence [Unknown]
  - Ventricular failure [Not Recovered/Not Resolved]
  - Neoplasm progression [Unknown]
  - Pulmonary hypertension [Not Recovered/Not Resolved]
  - Cognitive disorder [Not Recovered/Not Resolved]
  - Abdominal pain upper [Unknown]
  - Speech disorder [Unknown]
  - Back pain [Unknown]
  - Throat irritation [Not Recovered/Not Resolved]
  - Abdominal pain [Recovered/Resolved]
  - Dyspnoea [Unknown]
  - Proteinuria [Unknown]
  - Oedema peripheral [Unknown]

NARRATIVE: CASE EVENT DATE: 2018
